FAERS Safety Report 8834831 (Version 5)
Quarter: 2012Q4

REPORT INFORMATION
  Report Type: Report from Study
  Country: ES (occurrence: ES)
  Receive Date: 20121010
  Receipt Date: 20121130
  Transmission Date: 20130627
  Serious: Yes (Death, Other)
  Sender: FDA-Public Use
  Company Number: ES-VIIV HEALTHCARE LIMITED-B0836134A

PATIENT
  Age: 84 Year
  Sex: Male
  Weight: 63 kg

DRUGS (9)
  1. MARAVIROC [Suspect]
     Indication: HIV INFECTION
     Dosage: 300MG Twice per day
     Route: 048
     Dates: start: 20120110
  2. FENOFIBRATE [Concomitant]
     Indication: HYPERTRIGLYCERIDAEMIA
     Dosage: 145MG per day
     Route: 048
     Dates: start: 20091117
  3. ACETYLSALICYLIC ACID [Concomitant]
     Indication: ATRIAL FIBRILLATION
     Dosage: 300MG per day
     Route: 048
     Dates: start: 20030901
  4. CLOPIDOGREL [Concomitant]
     Dosage: 75MG per day
     Dates: start: 20120803
  5. FENTANILO [Concomitant]
     Dates: start: 20121002
  6. IBUPROFENO [Concomitant]
     Dates: start: 20121002
  7. PREDNISONA [Concomitant]
     Dosage: 30MG per day
     Dates: start: 20121002
  8. TRAMADOL [Concomitant]
     Dosage: 150MG per day
     Dates: start: 20121017
  9. PANTOPRAZOL [Concomitant]
     Dosage: 40MG per day
     Dates: start: 20121017

REACTIONS (2)
  - Lung neoplasm [Fatal]
  - Metastases to liver [Fatal]
